FAERS Safety Report 5764850-1 (Version None)
Quarter: 2008Q2

REPORT INFORMATION
  Report Type: 
  Country: None (occurrence: None)
  Receive Date: 20080611
  Receipt Date: 20080602
  Transmission Date: 20081010
  Serious: Yes (Hospitalization)
  Sender: FDA-Public Use
  Company Number: US-ELI_LILLY_AND_COMPANY-US200802003623

PATIENT
  Sex: Female

DRUGS (8)
  1. FORTEO [Suspect]
     Indication: OSTEOPOROSIS
     Dosage: 20 UG, DAILY (1/D)
     Dates: start: 20080206
  2. FENTANYL [Concomitant]
     Dosage: 25 MG, OTHER
  3. CALTRATE [Concomitant]
     Dosage: UNK, DAILY (1/D)
  4. OMEPRAZOLE [Concomitant]
     Dosage: 20 MG, DAILY (1/D)
  5. MULTIVITAMIN [Concomitant]
     Dosage: UNK, DAILY (1/D)
  6. FLAXSEED OIL [Concomitant]
     Dosage: UNK, DAILY (1/D)
  7. COUMADIN [Concomitant]
     Dosage: 2 MG, DAILY (1/D)
  8. COUMADIN [Concomitant]
     Dosage: 1.5 MG, WEEKLY (1/W)

REACTIONS (6)
  - ACTIVITIES OF DAILY LIVING IMPAIRED [None]
  - BRONCHITIS [None]
  - CARDIAC DISORDER [None]
  - COUGH [None]
  - DYSPNOEA [None]
  - FATIGUE [None]
